FAERS Safety Report 16105309 (Version 1)
Quarter: 2019Q1

REPORT INFORMATION
  Report Type: Spontaneous
  Country: US (occurrence: US)
  Receive Date: 20190219
  Receipt Date: 20190219
  Transmission Date: 20190418
  Serious: Yes (Hospitalization)
  Sender: FDA-Public Use
  Company Number: None

PATIENT
  Age: 67 Year
  Sex: Male
  Weight: 83 kg

DRUGS (2)
  1. APIXABAN 5MG OR 2.5MG [Suspect]
     Active Substance: APIXABAN
     Route: 048
  2. APIXABAN 5MG OR 2.5MG [Suspect]
     Active Substance: APIXABAN
     Indication: ANTICOAGULANT THERAPY
     Route: 048

REACTIONS (2)
  - Intestinal obstruction [None]
  - Large intestinal stenosis [None]

NARRATIVE: CASE EVENT DATE: 20190215
